FAERS Safety Report 24449835 (Version 3)
Quarter: 2024Q4

REPORT INFORMATION
  Report Type: Spontaneous
  Country: US (occurrence: US)
  Receive Date: 20241017
  Receipt Date: 20241220
  Transmission Date: 20250114
  Serious: Yes (Death, Hospitalization, Disabling, Other)
  Sender: GLAXOSMITHKLINE
  Company Number: US-GSK-US2024AMR125823

PATIENT

DRUGS (3)
  1. OJJAARA [Suspect]
     Active Substance: MOMELOTINIB DIHYDROCHLORIDE MONOHYDRATE
     Indication: Myelofibrosis
     Dosage: 100 MG
     Dates: start: 20240119, end: 20240216
  2. OJJAARA [Suspect]
     Active Substance: MOMELOTINIB DIHYDROCHLORIDE MONOHYDRATE
     Dosage: 100 MG
     Dates: start: 20240225, end: 20240308
  3. RASBURICASE [Concomitant]
     Active Substance: RASBURICASE
     Indication: Product used for unknown indication
     Dosage: UNK UNK, WE (INFUSION)

REACTIONS (8)
  - Eastern Cooperative Oncology Group performance status worsened [Fatal]
  - Blood uric acid increased [Fatal]
  - Renal failure [Fatal]
  - Myelofibrosis [Fatal]
  - Renal disorder [Recovered/Resolved with Sequelae]
  - Blood magnesium decreased [Unknown]
  - General physical health deterioration [Unknown]
  - Blood phosphorus increased [Recovered/Resolved]

NARRATIVE: CASE EVENT DATE: 20240214
